FAERS Safety Report 8872015 (Version 2)
Quarter: 2013Q3

REPORT INFORMATION
  Report Type: Spontaneous
  Country: US (occurrence: US)
  Receive Date: 20121026
  Receipt Date: 20130930
  Transmission Date: 20140515
  Serious: No
  Sender: FDA-Public Use
  Company Number: US-AMGEN-USASP2012048732

PATIENT
  Age: 53 Year
  Sex: Female

DRUGS (3)
  1. ENBREL [Suspect]
     Indication: RHEUMATOID ARTHRITIS
     Dosage: 50 MG, QWK
     Route: 065
     Dates: start: 20120427, end: 20120626
  2. AMOXICILLIN [Concomitant]
     Dosage: 250 MG, UNK
  3. PREDNISOLONE [Concomitant]
     Dosage: 5 MG, UNK

REACTIONS (1)
  - Drug ineffective [Not Recovered/Not Resolved]
